FAERS Safety Report 10033950 (Version 1)
Quarter: 2014Q1

REPORT INFORMATION
  Report Type: Spontaneous
  Country: US (occurrence: None)
  Receive Date: 20140324
  Receipt Date: 20140324
  Transmission Date: 20141002
  Serious: Yes (Hospitalization, Other)
  Sender: FDA-Public Use
  Company Number: None

PATIENT
  Age: 70 Year
  Sex: 0

DRUGS (18)
  1. LEVAQUIN [Suspect]
  2. LASIX [Concomitant]
  3. PROTONIX [Concomitant]
  4. LYRICA [Concomitant]
  5. COREG [Concomitant]
  6. SYNTHROID [Concomitant]
  7. PRANDIN [Concomitant]
  8. LIPITOR [Concomitant]
  9. ASPIRIN [Concomitant]
  10. ULORIC [Concomitant]
  11. NOVOLOG [Concomitant]
  12. BACTROBAN [Concomitant]
  13. LR [Concomitant]
  14. HEPARIN [Concomitant]
  15. NORCO [Concomitant]
  16. TAMIFLU [Concomitant]
  17. AZTREONAM [Concomitant]
  18. CLINDAMYCIN [Concomitant]

REACTIONS (6)
  - Hypotension [None]
  - Nausea [None]
  - Vomiting [None]
  - Diarrhoea [None]
  - Pyrexia [None]
  - Stevens-Johnson syndrome [None]
